FAERS Safety Report 16112536 (Version 3)
Quarter: 2020Q1

REPORT INFORMATION
  Report Type: Spontaneous
  Country: US (occurrence: US)
  Receive Date: 20190325
  Receipt Date: 20200327
  Transmission Date: 20200409
  Serious: No
  Sender: FDA-Public Use
  Company Number: US-PFIZER INC-2018518913

PATIENT
  Age: 43 Year
  Sex: Male

DRUGS (2)
  1. SOMAVERT [Suspect]
     Active Substance: PEGVISOMANT
     Dosage: 15 MG, UNK [5 DAYS A WEEK]
  2. SOMAVERT [Suspect]
     Active Substance: PEGVISOMANT
     Dosage: 20 MG, UNK (4 DAYS PER WEEK)
     Dates: start: 2016

REACTIONS (10)
  - Swelling [Unknown]
  - Product dose omission [Unknown]
  - Off label use [Unknown]
  - Swollen tongue [Unknown]
  - Anger [Unknown]
  - Product use issue [Unknown]
  - Insulin-like growth factor increased [Unknown]
  - Blood growth hormone increased [Unknown]
  - Feeling abnormal [Unknown]
  - Sensory disturbance [Unknown]
